FAERS Safety Report 7870138-5 (Version None)
Quarter: 2011Q4

REPORT INFORMATION
  Report Type: 
  Country: None (occurrence: None)
  Receive Date: 20111028
  Receipt Date: 20110114
  Transmission Date: 20120403
  Serious: No
  Sender: FDA-Public Use
  Company Number: US-AMGEN-USASP2010004362

PATIENT
  Age: 39 Year
  Sex: Female

DRUGS (3)
  1. METHOTREXATE [Concomitant]
  2. ENBREL [Suspect]
     Indication: RHEUMATOID ARTHRITIS
     Dosage: 50 MG, QWK
     Dates: start: 20091204
  3. FOLIC ACID [Concomitant]

REACTIONS (5)
  - OEDEMA PERIPHERAL [None]
  - LYMPH NODE PAIN [None]
  - EYELID OEDEMA [None]
  - SWELLING FACE [None]
  - OROPHARYNGEAL PAIN [None]
